FAERS Safety Report 5501668-9 (Version None)
Quarter: 2007Q4

REPORT INFORMATION
  Report Type: 
  Country: None (occurrence: None)
  Receive Date: 20071022
  Receipt Date: 20070803
  Transmission Date: 20080405
  Serious: No
  Sender: FDA-Public Use
  Company Number: SPV1-2007-03753

PATIENT
  Age: 48 Year
  Sex: Male
  Weight: 81.6 kg

DRUGS (1)
  1. VYVANSE [Suspect]
     Indication: ATTENTION DEFICIT/HYPERACTIVITY DISORDER

REACTIONS (3)
  - HYPERHIDROSIS [None]
  - MYDRIASIS [None]
  - OFF LABEL USE [None]
